FAERS Safety Report 13870542 (Version 3)
Quarter: 2017Q3

REPORT INFORMATION
  Report Type: Spontaneous
  Country: US (occurrence: US)
  Receive Date: 20170815
  Receipt Date: 20170922
  Transmission Date: 20171127
  Serious: Yes (Death, Other)
  Sender: FDA-Public Use
  Company Number: US-AMGEN-USASP2017123236

PATIENT
  Age: 19 Year
  Sex: Male

DRUGS (1)
  1. PARSABIV [Suspect]
     Active Substance: ETELCALCETIDE HYDROCHLORIDE
     Indication: HYPERPARATHYROIDISM SECONDARY
     Dosage: 5 MG, UNK
     Route: 065
     Dates: start: 20170725

REACTIONS (1)
  - Death [Fatal]

NARRATIVE: CASE EVENT DATE: 20170810
